FAERS Safety Report 14565735 (Version 1)
Quarter: 2018Q1

REPORT INFORMATION
  Report Type: Report from Study
  Country: JP (occurrence: JP)
  Receive Date: 20180223
  Receipt Date: 20180223
  Transmission Date: 20180509
  Serious: Yes (Death, Hospitalization)
  Sender: FDA-Public Use
  Company Number: JP-ASTRAZENECA-2018SE23398

PATIENT
  Age: 79 Year
  Sex: Female
  Weight: 44 kg

DRUGS (5)
  1. TAGRISSO [Suspect]
     Active Substance: OSIMERTINIB
     Indication: NON-SMALL CELL LUNG CANCER
     Route: 048
     Dates: start: 20161223, end: 20170822
  2. HIRUDOID [Concomitant]
     Active Substance: GLYCOSAMINOGLYCANS
     Indication: RASH
     Route: 062
     Dates: start: 20170215, end: 20170826
  3. LAC-B [Concomitant]
     Active Substance: BIFIDOBACTERIUM SPP.
     Indication: CONSTIPATION
     Route: 048
     Dates: start: 20170412, end: 20170824
  4. AMITIZA [Concomitant]
     Active Substance: LUBIPROSTONE
     Indication: CONSTIPATION
     Route: 048
     Dates: start: 20170816, end: 20170824
  5. TAKECAB [Concomitant]
     Active Substance: VONOPRAZAN FUMURATE
     Indication: GASTRIC ULCER
     Route: 048
     Dates: start: 20170803, end: 20170824

REACTIONS (1)
  - Interstitial lung disease [Fatal]

NARRATIVE: CASE EVENT DATE: 20170824
